FAERS Safety Report 4489557-2 (Version None)
Quarter: 2004Q4

REPORT INFORMATION
  Report Type: 
  Country: None (occurrence: None)
  Receive Date: 20041026
  Receipt Date: 20041008
  Transmission Date: 20050328
  Serious: Yes (Hospitalization, Other)
  Sender: FDA-Public Use
  Company Number: US92123733A

PATIENT
  Age: 50 Year
  Sex: Female
  Weight: 111 kg

DRUGS (12)
  1. HUMALOG [Suspect]
     Indication: DIABETES MELLITUS
     Dates: start: 20000101
  2. HUMULIN R [Suspect]
     Indication: DIABETES MELLITUS
     Dosage: 17.5 U/2 DAY
     Dates: start: 19900101, end: 20020301
  3. HUMULIN N [Suspect]
     Indication: DIABETES MELLITUS
     Dosage: 17.5 U/2 DAY
     Dates: start: 19900101, end: 20020301
  4. HUMULIN 70/30 [Suspect]
     Indication: DIABETES MELLITUS
     Dosage: 17.5 U/2 DAY
     Dates: start: 19900101, end: 20020301
  5. HUMULIN 70/30 [Suspect]
     Indication: DIABETES MELLITUS
  6. LIPITOR [Concomitant]
  7. COZAAR (LOSARATN POTASSIUM) [Concomitant]
  8. LANTUS [Concomitant]
  9. INSULIN ASPART [Concomitant]
  10. METFORMIN [Concomitant]
  11. AVANDIA [Concomitant]
  12. ACTOS [Concomitant]

REACTIONS (25)
  - AGGRESSION [None]
  - BLOOD CHOLESTEROL INCREASED [None]
  - CARDIOMEGALY [None]
  - CHRONIC OBSTRUCTIVE AIRWAYS DISEASE EXACERBATED [None]
  - DEAFNESS UNILATERAL [None]
  - DIABETES MELLITUS INADEQUATE CONTROL [None]
  - DRUG INEFFECTIVE [None]
  - FUNGAL INFECTION [None]
  - GLUCOSE TOLERANCE IMPAIRED [None]
  - GLYCOSYLATED HAEMOGLOBIN INCREASED [None]
  - HAEMORRHAGE [None]
  - HYPERGLYCAEMIA [None]
  - IMPAIRED HEALING [None]
  - INFECTION [None]
  - INSULIN RESISTANCE [None]
  - NEUROPATHY [None]
  - PHARMACEUTICAL PRODUCT COMPLAINT [None]
  - POSTMENOPAUSAL HAEMORRHAGE [None]
  - POSTOPERATIVE INFECTION [None]
  - RASH [None]
  - SENSORY DISTURBANCE [None]
  - TOOTH DISORDER [None]
  - TOOTH INFECTION [None]
  - TOOTH LOSS [None]
  - UTERINE LEIOMYOMA [None]
